FAERS Safety Report 6671958-5 (Version None)
Quarter: 2010Q2

REPORT INFORMATION
  Report Type: 
  Country: None (occurrence: None)
  Receive Date: 20100407
  Receipt Date: 20100329
  Transmission Date: 20101027
  Serious: Yes (Other)
  Sender: FDA-Public Use
  Company Number: US-AMGEN-QUU402714

PATIENT
  Sex: Male

DRUGS (1)
  1. ENBREL [Suspect]
     Indication: PSORIATIC ARTHROPATHY
     Route: 058
     Dates: start: 20091105

REACTIONS (6)
  - ABDOMINAL DISCOMFORT [None]
  - BRAIN CONTUSION [None]
  - FALL [None]
  - PAIN [None]
  - SKIN LACERATION [None]
  - SWELLING FACE [None]
